FAERS Safety Report 15963649 (Version 2)
Quarter: 2023Q2

REPORT INFORMATION
  Report Type: Spontaneous
  Country: US (occurrence: US)
  Receive Date: 20190214
  Receipt Date: 20230518
  Transmission Date: 20230721
  Serious: No
  Sender: FDA-Public Use
  Company Number: US-COLLEGIUM PHARMACEUTICAL, INC.-2019CGM00023

PATIENT
  Age: 61 Year
  Sex: Female
  Weight: 62.585 kg

DRUGS (8)
  1. XTAMPZA ER [Suspect]
     Active Substance: OXYCODONE
     Dosage: 36 MILLIGRAM, BID
     Route: 048
     Dates: start: 20190115
  2. XTAMPZA ER [Suspect]
     Active Substance: OXYCODONE
     Dosage: 18 MILLIGRAM, BID
     Route: 048
     Dates: start: 2020, end: 2021
  3. XTAMPZA ER [Suspect]
     Active Substance: OXYCODONE
     Dosage: 13.5 MILLIGRAM, BID
     Route: 048
     Dates: start: 2021, end: 202112
  4. XTAMPZA ER [Suspect]
     Active Substance: OXYCODONE
     Dosage: 9 MILLIGRAM, BID
     Route: 048
     Dates: start: 202112
  5. XTAMPZA ER [Suspect]
     Active Substance: OXYCODONE
  6. XTAMPZA ER [Suspect]
     Active Substance: OXYCODONE
  7. ATENOLOL [Suspect]
     Active Substance: ATENOLOL
     Dosage: UNK
  8. VITAMINS [Concomitant]
     Active Substance: VITAMINS

REACTIONS (8)
  - Electric shock sensation [Recovering/Resolving]
  - Brain fog [Recovering/Resolving]
  - Therapeutic response shortened [Unknown]
  - Therapeutic product effect variable [Recovering/Resolving]
  - Somnolence [Recovering/Resolving]
  - Back pain [Unknown]
  - Heart rate increased [Recovering/Resolving]
  - Product tampering [Not Recovered/Not Resolved]

NARRATIVE: CASE EVENT DATE: 20190115
